FAERS Safety Report 5027689-0 (Version None)
Quarter: 2006Q2

REPORT INFORMATION
  Report Type: 
  Country: None (occurrence: None)
  Receive Date: 20060616
  Receipt Date: 20060606
  Transmission Date: 20061013
  Serious: Yes (Disabling, Other)
  Sender: FDA-Public Use
  Company Number: US-AVENTIS-200615103US

PATIENT
  Sex: Female
  Weight: 81 kg

DRUGS (3)
  1. KETEK [Suspect]
     Indication: ACUTE SINUSITIS
     Route: 048
     Dates: start: 20040818
  2. KETEK [Suspect]
     Route: 048
     Dates: start: 20041019
  3. KETEK [Suspect]
     Route: 048
     Dates: start: 20050203

REACTIONS (6)
  - ALANINE AMINOTRANSFERASE INCREASED [None]
  - ASPARTATE AMINOTRANSFERASE INCREASED [None]
  - GAMMA-GLUTAMYLTRANSFERASE [None]
  - HEPATIC STEATOSIS [None]
  - LIVER DISORDER [None]
  - TRANSAMINASES INCREASED [None]
